FAERS Safety Report 7297831-X (Version None)
Quarter: 2011Q1

REPORT INFORMATION
  Report Type: 
  Country: None (occurrence: None)
  Receive Date: 20110217
  Receipt Date: 20110203
  Transmission Date: 20110831
  Serious: Yes (Hospitalization)
  Sender: FDA-Public Use
  Company Number: US-RANBAXY-2010RR-37898

PATIENT
  Sex: Male

DRUGS (4)
  1. LEVAQUIN [Suspect]
     Indication: URINARY TRACT INFECTION
     Dosage: UNK
     Route: 048
     Dates: start: 20080612, end: 20080619
  2. CIPROFLOXACIN [Suspect]
     Indication: URINARY TRACT INFECTION
     Route: 065
  3. PREDNISOLONE [Suspect]
     Indication: ILL-DEFINED DISORDER
     Dosage: 20 MG, UNK
     Route: 048
     Dates: start: 20080618
  4. LEVAQUIN [Suspect]
     Dosage: 500 MG, UNK
     Dates: start: 20080910

REACTIONS (2)
  - OSTEOCHONDRITIS [None]
  - TENDON RUPTURE [None]
